FAERS Safety Report 21129564 (Version 1)
Quarter: 2022Q3

REPORT INFORMATION
  Report Type: Spontaneous
  Country: JP (occurrence: JP)
  Receive Date: 20220726
  Receipt Date: 20220726
  Transmission Date: 20221027
  Serious: Yes (Hospitalization)
  Sender: FDA-Public Use
  Company Number: JP-MACLEODS PHARMACEUTICALS US LTD-MAC2022036546

PATIENT

DRUGS (2)
  1. CLOPIDOGREL [Suspect]
     Active Substance: CLOPIDOGREL BISULFATE
     Indication: Optic neuritis
     Dosage: UNK
     Route: 065
  2. PEMAFIBRATE [Suspect]
     Active Substance: PEMAFIBRATE
     Indication: Dyslipidaemia
     Dosage: UNK
     Route: 065

REACTIONS (4)
  - Vanishing bile duct syndrome [Recovered/Resolved]
  - Cholestasis [Recovered/Resolved]
  - Drug-induced liver injury [Recovered/Resolved]
  - Hyperlipidaemia [Recovered/Resolved]
